FAERS Safety Report 9830536 (Version 2)
Quarter: 2019Q1

REPORT INFORMATION
  Report Type: Spontaneous
  Country: GB (occurrence: GB)
  Receive Date: 20140120
  Receipt Date: 20190311
  Transmission Date: 20190418
  Serious: Yes (Life-Threatening)
  Sender: FDA-Public Use
  Company Number: GB-NOVOPROD-397544

PATIENT
  Age: 50 Year
  Sex: Female
  Weight: 78 kg

DRUGS (10)
  1. PREGABALIN. [Concomitant]
     Active Substance: PREGABALIN
     Dosage: 75 MG
     Route: 048
  2. EXENATIDE. [Concomitant]
     Active Substance: EXENATIDE
     Dosage: UNK
  3. VICTOZA [Suspect]
     Active Substance: LIRAGLUTIDE
     Indication: TYPE 2 DIABETES MELLITUS
     Dosage: 1.2 MG, QD
     Route: 058
     Dates: start: 200803, end: 201306
  4. CHLORPROMAZINE. [Concomitant]
     Active Substance: CHLORPROMAZINE
     Dosage: 75 MG
     Route: 065
  5. INSULIN [Concomitant]
     Active Substance: INSULIN NOS
     Dosage: UNK
  6. BUSCOPAN [Concomitant]
     Active Substance: BUTYLSCOPOLAMINE BROMIDE
     Dosage: UNK
     Route: 048
  7. OMEPRAZOLE. [Concomitant]
     Active Substance: OMEPRAZOLE
     Dosage: 20 MG
     Route: 048
  8. JANUVIA [Suspect]
     Active Substance: SITAGLIPTIN PHOSPHATE
     Indication: TYPE 2 DIABETES MELLITUS
     Dosage: 100 MG
     Route: 048
     Dates: start: 20071116, end: 20130327
  9. CLOMIPRAMINE [Concomitant]
     Active Substance: CLOMIPRAMINE
     Dosage: UNK
     Dates: start: 19970404
  10. HUMULIN L [Concomitant]
     Active Substance: INSULIN HUMAN
     Dosage: UNK
     Route: 058

REACTIONS (4)
  - Metastases to liver [Not Recovered/Not Resolved]
  - Mastectomy [Unknown]
  - Cholangiocarcinoma [Not Recovered/Not Resolved]
  - Breast cancer [Unknown]
